FAERS Safety Report 22177189 (Version 3)
Quarter: 2023Q2

REPORT INFORMATION
  Report Type: Report from Study
  Country: FR (occurrence: FR)
  Receive Date: 20230405
  Receipt Date: 20230623
  Transmission Date: 20230722
  Serious: Yes (Death, Life-Threatening, Other)
  Sender: FDA-Public Use
  Company Number: FR-TAKEDA-2023TUS034795

PATIENT
  Age: 11 Year
  Sex: Male

DRUGS (8)
  1. IDURSULFASE [Suspect]
     Active Substance: IDURSULFASE
     Indication: Mucopolysaccharidosis II
     Dosage: 0.55 MILLIGRAM/KILOGRAM, 1/WEEK
     Route: 042
     Dates: start: 20061215
  2. IDURSULFASE [Suspect]
     Active Substance: IDURSULFASE
     Dosage: 0.56 MILLIGRAM/KILOGRAM, 1/WEEK
     Route: 042
     Dates: start: 20070125
  3. IDURSULFASE [Suspect]
     Active Substance: IDURSULFASE
     Dosage: 0.57 MILLIGRAM/KILOGRAM, 1/WEEK
     Route: 042
     Dates: start: 20071129
  4. BUDESONIDE [Concomitant]
     Active Substance: BUDESONIDE
     Indication: Respiratory disorder
     Dosage: UNK
     Route: 055
     Dates: start: 2006, end: 200806
  5. LEVOMEPROMAZINE [Concomitant]
     Active Substance: LEVOMEPROMAZINE
     Indication: Nervous system disorder
     Dosage: UNK
     Route: 048
     Dates: start: 2006, end: 200806
  6. RISPERIDONE [Concomitant]
     Active Substance: RISPERIDONE
     Indication: Behaviour disorder
     Dosage: UNK
     Route: 048
     Dates: start: 2006, end: 200806
  7. ALBUTEROL [Concomitant]
     Active Substance: ALBUTEROL
     Indication: Respiratory disorder
     Dosage: UNK
     Route: 055
     Dates: start: 2006, end: 200806
  8. TERBUTALINE [Concomitant]
     Active Substance: TERBUTALINE
     Indication: Respiratory disorder
     Dosage: UNK
     Route: 055
     Dates: start: 2006, end: 200711

REACTIONS (1)
  - Cardiac arrest [Fatal]

NARRATIVE: CASE EVENT DATE: 20080621
